FAERS Safety Report 4796496-6 (Version None)
Quarter: 2005Q4

REPORT INFORMATION
  Report Type: 
  Country: None (occurrence: None)
  Receive Date: 20051006
  Receipt Date: 20051006
  Transmission Date: 20060501
  Serious: Yes (Life-Threatening)
  Sender: FDA-Public Use
  Company Number: None

PATIENT
  Age: 76 Year
  Sex: Female

DRUGS (10)
  1. CLOPIDOGREL [Suspect]
     Indication: CORONARY ARTERY DISEASE
     Dosage: 75MG PO QD
     Route: 048
     Dates: start: 20041210, end: 20041222
  2. ASPIRIN [Concomitant]
  3. AMLODIPINE [Concomitant]
  4. ATORVASTATIN [Concomitant]
  5. ENALAPRIL [Concomitant]
  6. FUROSEMIDE [Concomitant]
  7. HYDROCHLOROTHIAZIDE [Concomitant]
  8. LANSOPRAZOLE [Concomitant]
  9. METOPROLOL SUCCINATE [Concomitant]
  10. ZOSYN [Concomitant]

REACTIONS (6)
  - ATRIAL FIBRILLATION [None]
  - DUODENAL ULCER [None]
  - FATIGUE [None]
  - HAEMOGLOBIN DECREASED [None]
  - POST PROCEDURAL COMPLICATION [None]
  - THROMBOSIS [None]
